FAERS Safety Report 4386522-0 (Version None)
Quarter: 2004Q2

REPORT INFORMATION
  Report Type: 
  Country: None (occurrence: None)
  Receive Date: 20040623
  Receipt Date: 20040616
  Transmission Date: 20050107
  Serious: Yes (Other)
  Sender: FDA-Public Use
  Company Number: 200313598BCC

PATIENT
  Age: 83 Year
  Sex: Female
  Weight: 52.1637 kg

DRUGS (5)
  1. ALEVE [Suspect]
     Dosage: 1760 MG, TOTAL DAILY, ORAL; 880 MG, TOTAL DAILY, ORAL; 440 MG, TOTAL DAILY, ORAL
     Route: 048
  2. ALEVE [Suspect]
     Dosage: 1760 MG, TOTAL DAILY, ORAL; 880 MG, TOTAL DAILY, ORAL; 440 MG, TOTAL DAILY, ORAL
     Route: 048
  3. ALEVE [Suspect]
     Dosage: 1760 MG, TOTAL DAILY, ORAL; 880 MG, TOTAL DAILY, ORAL; 440 MG, TOTAL DAILY, ORAL
     Route: 048
     Dates: start: 20030930
  4. ASPIRIN [Suspect]
     Indication: PROPHYLAXIS
     Dosage: 81 MG, TOTAL DAILY, ORAL
     Route: 048
     Dates: start: 20000101
  5. MULTIVITAMIN [Concomitant]

REACTIONS (5)
  - BACTERIA URINE [None]
  - CYSTOSCOPY ABNORMAL [None]
  - ERYTHEMA [None]
  - HAEMORRHAGE URINARY TRACT [None]
  - SCAR [None]
